FAERS Safety Report 8152505-8 (Version None)
Quarter: 2012Q1

REPORT INFORMATION
  Report Type: 
  Country: None (occurrence: None)
  Receive Date: 20120202
  Receipt Date: 20111216
  Transmission Date: 20120608
  Serious: Yes (Hospitalization)
  Sender: FDA-Public Use
  Company Number: 2011030369

PATIENT
  Age: 70 Year
  Sex: Female
  Weight: 77.1115 kg

DRUGS (28)
  1. ATENOLOL [Concomitant]
  2. POTASSIUM CHLORIDE [Concomitant]
  3. GLIPIZIDE [Concomitant]
  4. ATIVAN [Concomitant]
  5. NASONEX [Concomitant]
  6. FOLIC ACID [Concomitant]
  7. ARAVA [Concomitant]
  8. HIZENTRA [Suspect]
     Indication: COMBINED IMMUNODEFICIENCY
     Dosage: SEE IMAGE SUBCUTANEOUS
     Route: 058
     Dates: start: 20111025
  9. HIZENTRA [Suspect]
     Indication: COMBINED IMMUNODEFICIENCY
     Dosage: SEE IMAGE SUBCUTANEOUS
     Route: 058
     Dates: start: 20111116, end: 20111116
  10. HIZENTRA [Suspect]
     Indication: COMBINED IMMUNODEFICIENCY
     Dosage: SEE IMAGE SUBCUTANEOUS
     Route: 058
     Dates: start: 20111207
  11. HIZENTRA [Suspect]
     Indication: COMBINED IMMUNODEFICIENCY
     Dosage: SEE IMAGE SUBCUTANEOUS
     Route: 058
     Dates: start: 20111026
  12. HIZENTRA [Suspect]
  13. THEOPHYLLINE [Concomitant]
  14. LASIX [Concomitant]
  15. ADVAIR HFA [Concomitant]
  16. CELEXA [Concomitant]
  17. LIPITOR [Concomitant]
  18. PLAVIX [Concomitant]
  19. ENBREL [Concomitant]
  20. LOVAZA (OMEGA-3 FATTY ACIDS) [Concomitant]
  21. HIZENTRA [Suspect]
  22. PREVACID [Concomitant]
  23. XOLAIR [Concomitant]
  24. ALBUTEROL [Concomitant]
  25. HIZENTRA [Suspect]
  26. ZESTRIL [Concomitant]
  27. PRO-AIR (PROCATEROL HYDROCHLORIDE) [Concomitant]
  28. VITAMIN D [Concomitant]

REACTIONS (2)
  - PAIN [None]
  - INFUSION SITE SWELLING [None]
